FAERS Safety Report 5066384-9 (Version None)
Quarter: 2006Q3

REPORT INFORMATION
  Report Type: 
  Country: None (occurrence: None)
  Receive Date: 20060801
  Receipt Date: 20060719
  Transmission Date: 20061208
  Serious: Yes (Disabling, Other)
  Sender: FDA-Public Use
  Company Number: GB-AVENTIS-200614069EU

PATIENT
  Age: 9 Month
  Sex: Male
  Weight: 7.5 kg

DRUGS (5)
  1. FUROSEMIDE [Suspect]
     Indication: FLUID RETENTION
     Route: 042
     Dates: start: 20060531, end: 20060531
  2. CHLORAL HYDRATE [Concomitant]
     Indication: SEDATION
     Route: 048
  3. CLONIDINE [Concomitant]
     Indication: SEDATION
     Route: 048
  4. ERYTHROMYCIN [Concomitant]
     Route: 048
     Dates: start: 20060514
  5. TRIMETHOPRIM [Concomitant]
     Route: 048
     Dates: start: 20060514

REACTIONS (5)
  - HYPERHIDROSIS [None]
  - INSOMNIA [None]
  - IRRITABILITY [None]
  - RESTLESSNESS [None]
  - TACHYCARDIA [None]
